FAERS Safety Report 8871203 (Version 1)
Quarter: 2012Q4

REPORT INFORMATION
  Report Type: 
  Country: US (occurrence: US)
  Receive Date: 20121023
  Receipt Date: 20121023
  Transmission Date: 20130627
  Serious: No
  Sender: FDA-Public Use
  Company Number: US-AMGEN-USASP2011061837

PATIENT
  Age: 59 Year
  Sex: Female
  Weight: 63.49 kg

DRUGS (9)
  1. ENBREL [Suspect]
     Indication: PRODUCT USED FOR UNKNOWN INDICATION
     Dosage: 50 mg, qwk
  2. FLEXERIL                           /00428402/ [Concomitant]
     Dosage: 10 mg, UNK
  3. METHOTREXATE [Concomitant]
     Dosage: 2.5 mg, UNK
  4. TRAMADOL [Concomitant]
     Dosage: 50 mg, UNK
  5. ACTONEL [Concomitant]
     Dosage: 30 mg, UNK
  6. VITAMIN D /00107901/ [Concomitant]
  7. IBUPROFEN [Concomitant]
     Dosage: 200 mg, UNK
  8. VIT C [Concomitant]
     Dosage: 500 mg, UNK
  9. OXYCODONE [Concomitant]
     Dosage: 10 mg, UNK

REACTIONS (4)
  - Lacrimation increased [Unknown]
  - Rhinorrhoea [Unknown]
  - Eye swelling [Unknown]
  - Muscular weakness [Unknown]
